FAERS Safety Report 12474750 (Version 1)
Quarter: 2016Q2

REPORT INFORMATION
  Report Type: Spontaneous
  Country: IT (occurrence: IT)
  Receive Date: 20160617
  Receipt Date: 20160617
  Transmission Date: 20160815
  Serious: Yes (Death, Other)
  Sender: FDA-Public Use
  Company Number: IT-BRISTOL-MYERS SQUIBB COMPANY-BMS-2016-044747

PATIENT
  Age: 95 Year
  Sex: Male

DRUGS (1)
  1. COUMADIN [Suspect]
     Active Substance: WARFARIN SODIUM
     Indication: ATRIAL FLUTTER
     Dosage: 1 U, UNK
     Route: 048
     Dates: start: 20160101, end: 20160606

REACTIONS (7)
  - Laceration [Unknown]
  - Haematoma [Unknown]
  - Subarachnoid haemorrhage [Fatal]
  - Fall [Unknown]
  - Injury [Unknown]
  - Subdural haematoma [Fatal]
  - Wound [Unknown]

NARRATIVE: CASE EVENT DATE: 20160606
